FAERS Safety Report 13909232 (Version 2)
Quarter: 2017Q4

REPORT INFORMATION
  Report Type: Spontaneous
  Country: DE (occurrence: DE)
  Receive Date: 20170828
  Receipt Date: 20171204
  Transmission Date: 20180320
  Serious: Yes (Death, Hospitalization, Other)
  Sender: FDA-Public Use
  Company Number: DE-ACCORD-057646

PATIENT
  Age: 22 Year
  Sex: Female

DRUGS (2)
  1. QUETIAPINE. [Suspect]
     Active Substance: QUETIAPINE
     Indication: PSYCHOTIC DISORDER
  2. LORAZEPAM. [Concomitant]
     Active Substance: LORAZEPAM

REACTIONS (8)
  - Agranulocytosis [Fatal]
  - Hypoxia [Unknown]
  - Multiple organ dysfunction syndrome [Fatal]
  - Pharyngitis [Unknown]
  - Metabolic acidosis [Unknown]
  - Fall [Unknown]
  - Sepsis [Fatal]
  - Pneumonia fungal [Fatal]
